FAERS Safety Report 7670842-8 (Version None)
Quarter: 2011Q3

REPORT INFORMATION
  Report Type: 
  Country: None (occurrence: None)
  Receive Date: 20110805
  Receipt Date: 20110805
  Transmission Date: 20111222
  Serious: No
  Sender: FDA-Public Use
  Company Number: None

PATIENT
  Age: 65 Year
  Sex: Male

DRUGS (1)
  1. OCTREOTIDE ACETATE [Suspect]
     Dosage: 0.05 MCG TID SQ
     Route: 058
     Dates: start: 20110712, end: 20110712

REACTIONS (1)
  - CHILLS [None]
